FAERS Safety Report 19465608 (Version 2)
Quarter: 2021Q3

REPORT INFORMATION
  Report Type: Spontaneous
  Country: AR (occurrence: AR)
  Receive Date: 20210625
  Receipt Date: 20210722
  Transmission Date: 20211014
  Serious: Yes (Other)
  Sender: FDA-Public Use
  Company Number: PHHY2018AR182509

PATIENT
  Sex: Female

DRUGS (2)
  1. ANAFRANIL [Suspect]
     Active Substance: CLOMIPRAMINE HYDROCHLORIDE
     Indication: DEPRESSION
     Dosage: STARTED 1 MONTH AGO, QD, 1 OF THE THREE PARTS IN WHICH SHE FRACTIONED IT
     Route: 065
  2. ANAFRANIL [Suspect]
     Active Substance: CLOMIPRAMINE HYDROCHLORIDE
     Indication: DEPRESSION
     Dosage: 25 MG, QD (40 YEARS AGO)
     Route: 065

REACTIONS (8)
  - Drug ineffective [Unknown]
  - Anxiety [Recovering/Resolving]
  - Depressed mood [Unknown]
  - Tinnitus [Unknown]
  - Deafness [Recovering/Resolving]
  - Fear [Unknown]
  - Wrong technique in product usage process [Unknown]
  - Hearing disability [Unknown]
